FAERS Safety Report 22973097 (Version 2)
Quarter: 2024Q2

REPORT INFORMATION
  Report Type: Spontaneous
  Country: SE (occurrence: SE)
  Receive Date: 20230922
  Receipt Date: 20240401
  Transmission Date: 20240716
  Serious: Yes (Hospitalization, Other)
  Sender: FDA-Public Use
  Company Number: SE-Merck Healthcare KGaA-2023465636

PATIENT
  Sex: Male

DRUGS (2)
  1. TEPMETKO [Suspect]
     Active Substance: TEPOTINIB HYDROCHLORIDE
     Indication: Non-small cell lung cancer
     Dates: start: 202304
  2. BRIGATINIB [Suspect]
     Active Substance: BRIGATINIB
     Indication: Non-small cell lung cancer

REACTIONS (5)
  - Erysipelas [Recovering/Resolving]
  - Oedema peripheral [Not Recovered/Not Resolved]
  - Blood albumin decreased [Unknown]
  - Disease progression [Unknown]
  - Off label use [Unknown]
